FAERS Safety Report 17836181 (Version 1)
Quarter: 2020Q2

REPORT INFORMATION
  Report Type: Spontaneous
  Country: NO (occurrence: NO)
  Receive Date: 20200528
  Receipt Date: 20200528
  Transmission Date: 20200714
  Serious: Yes (Life-Threatening)
  Sender: FDA-Public Use
  Company Number: NO-ALLERGAN-2021322US

PATIENT
  Sex: Male
  Weight: 71 kg

DRUGS (2)
  1. ESCITALOPRAM OXALATE - BP [Suspect]
     Active Substance: ESCITALOPRAM OXALATE
     Indication: DEPRESSION
     Dosage: UNK
     Dates: start: 20150601, end: 20160701
  2. ESCITALOPRAM OXALATE - BP [Suspect]
     Active Substance: ESCITALOPRAM OXALATE
     Indication: SUICIDE ATTEMPT
     Dosage: 20 MG, QD
     Dates: start: 20150601, end: 20160601

REACTIONS (14)
  - Haematochezia [Unknown]
  - Headache [Unknown]
  - Depression [Unknown]
  - Impulsive behaviour [Recovered/Resolved with Sequelae]
  - Insomnia [Unknown]
  - Heart rate abnormal [Recovered/Resolved with Sequelae]
  - Change of bowel habit [Recovered/Resolved with Sequelae]
  - Cognitive disorder [Recovered/Resolved with Sequelae]
  - Apathy [Recovered/Resolved with Sequelae]
  - Affect lability [Recovered/Resolved with Sequelae]
  - Fatigue [Unknown]
  - Poor personal hygiene [Unknown]
  - Personality disorder [Recovered/Resolved with Sequelae]
  - Chest pain [Unknown]

NARRATIVE: CASE EVENT DATE: 20150601
